FAERS Safety Report 6380808-6 (Version None)
Quarter: 2009Q3

REPORT INFORMATION
  Report Type: 
  Country: None (occurrence: None)
  Receive Date: 20090925
  Receipt Date: 20090925
  Transmission Date: 20100115
  Serious: Yes (Congenital Anomaly, Other)
  Sender: FDA-Public Use
  Company Number: None

PATIENT
  Age: 22 Year
  Sex: Female
  Weight: 62.5964 kg

DRUGS (1)
  1. BRETHINE [Suspect]
     Indication: PREMATURE LABOUR
     Dosage: PO
     Route: 048
     Dates: start: 20010722, end: 20090814

REACTIONS (3)
  - AUTISM [None]
  - MATERNAL DRUGS AFFECTING FOETUS [None]
  - SENSORY DISTURBANCE [None]
